FAERS Safety Report 18265371 (Version 1)
Quarter: 2020Q3

REPORT INFORMATION
  Report Type: Other
  Country: US (occurrence: US)
  Receive Date: 20200914
  Receipt Date: 20200914
  Transmission Date: 20201103
  Serious: No
  Sender: FDA-Public Use
  Company Number: US-LEADIANT BIOSCIENCES INC-2020STPI000161

PATIENT
  Age: 28 Year
  Sex: Male

DRUGS (12)
  1. ONDANSETRON [Concomitant]
     Active Substance: ONDANSETRON
  2. LEVETIRACETAM. [Concomitant]
     Active Substance: LEVETIRACETAM
  3. LISINOPRIL. [Concomitant]
     Active Substance: LISINOPRIL
  4. SERTRALINE [Concomitant]
     Active Substance: SERTRALINE HYDROCHLORIDE
  5. GLEOSTINE [Concomitant]
     Active Substance: LOMUSTINE
  6. MATULANE [Suspect]
     Active Substance: PROCARBAZINE HYDROCHLORIDE
     Indication: BRAIN NEOPLASM MALIGNANT
     Dosage: 50 MG (3 CAPSULES) ON DAYS 8?21
     Route: 048
     Dates: start: 20190610
  7. VIMPAT [Concomitant]
     Active Substance: LACOSAMIDE
  8. AKYNZEO [Concomitant]
     Active Substance: NETUPITANT\PALONOSETRON HYDROCHLORIDE
  9. LORAZEPAM. [Concomitant]
     Active Substance: LORAZEPAM
  10. TOPIRAMATE. [Concomitant]
     Active Substance: TOPIRAMATE
  11. VARUBI [ROLAPITANT] [Concomitant]
  12. LIDOCAINE. [Concomitant]
     Active Substance: LIDOCAINE

REACTIONS (1)
  - Thrombocytopenia [Not Recovered/Not Resolved]

NARRATIVE: CASE EVENT DATE: 20200308
